FAERS Safety Report 8446617-9 (Version None)
Quarter: 2012Q2

REPORT INFORMATION
  Report Type: 
  Country: None (occurrence: None)
  Receive Date: 20120619
  Receipt Date: 20120611
  Transmission Date: 20120825
  Serious: Yes (Other)
  Sender: FDA-Public Use
  Company Number: AT-AMGEN-AUTSP2012036232

PATIENT
  Sex: Male

DRUGS (1)
  1. ARANESP [Suspect]
     Indication: PRODUCT USED FOR UNKNOWN INDICATION
     Dosage: UNK UNK, Q3WK

REACTIONS (4)
  - BLOOD ERYTHROPOIETIN INCREASED [None]
  - BLOOD PRODUCT TRANSFUSION DEPENDENT [None]
  - ANAEMIA [None]
  - CONDITION AGGRAVATED [None]
